FAERS Safety Report 4945179-8 (Version None)
Quarter: 2006Q1

REPORT INFORMATION
  Report Type: 
  Country: None (occurrence: None)
  Receive Date: 20060316
  Receipt Date: 20060306
  Transmission Date: 20060701
  Serious: Yes (Death)
  Sender: FDA-Public Use
  Company Number: BR-JNJFOC-20060302574

PATIENT
  Age: 5 Year
  Sex: Female

DRUGS (2)
  1. TYLENOL (CAPLET) [Suspect]
     Route: 048
  2. TYLENOL (CAPLET) [Suspect]
     Indication: ANTIPYRESIS
     Route: 048

REACTIONS (4)
  - CARDIAC ARREST [None]
  - PYREXIA [None]
  - SYNCOPE [None]
  - VOMITING [None]
